FAERS Safety Report 8473220-7 (Version None)
Quarter: 2012Q2

REPORT INFORMATION
  Report Type: 
  Country: None (occurrence: None)
  Receive Date: 20120627
  Receipt Date: 20120620
  Transmission Date: 20120825
  Serious: Yes (Hospitalization, Other)
  Sender: FDA-Public Use
  Company Number: US-AMGEN-USASP2011041504

PATIENT
  Age: 61 Year
  Sex: Male

DRUGS (1)
  1. ENBREL [Suspect]
     Indication: RHEUMATOID ARTHRITIS
     Dosage: 50 MG, QWK
     Dates: start: 20110101, end: 20110713

REACTIONS (11)
  - BLOOD PRESSURE INCREASED [None]
  - CHOLECYSTECTOMY [None]
  - NON-HODGKIN'S LYMPHOMA STAGE I [None]
  - ABDOMINAL PAIN UPPER [None]
  - WEIGHT DECREASED [None]
  - AGGRESSION [None]
  - VOMITING [None]
  - DRUG DEPENDENCE [None]
  - IMMUNE SYSTEM DISORDER [None]
  - PAIN [None]
  - INFLUENZA LIKE ILLNESS [None]
